FAERS Safety Report 21789651 (Version 1)
Quarter: 2022Q4

REPORT INFORMATION
  Report Type: Spontaneous
  Country: JP (occurrence: JP)
  Receive Date: 20221228
  Receipt Date: 20221228
  Transmission Date: 20230112
  Serious: Yes (Other)
  Sender: FDA-Public Use
  Company Number: JP-JNJFOC-20221250322

PATIENT
  Age: 51 Year
  Sex: Female

DRUGS (1)
  1. TRACLEER [Suspect]
     Active Substance: BOSENTAN
     Indication: Peripheral circulatory failure
     Dosage: DOSE UNKNOWN
     Route: 048

REACTIONS (2)
  - Pulmonary congestion [Unknown]
  - Off label use [Unknown]
